FAERS Safety Report 8546466-7 (Version None)
Quarter: 2012Q3

REPORT INFORMATION
  Report Type: 
  Country: None (occurrence: None)
  Receive Date: 20120727
  Receipt Date: 20120111
  Transmission Date: 20120928
  Serious: No
  Sender: FDA-Public Use
  Company Number: US-ASTRAZENECA-2012SE02254

PATIENT
  Age: 71 Year
  Sex: Female
  Weight: 63.5 kg

DRUGS (8)
  1. CARDIZEM CD [Concomitant]
     Indication: HYPERTENSION
  2. SEROQUEL XR [Suspect]
     Indication: SLEEP DISORDER
     Route: 048
  3. ZOLOFT [Concomitant]
  4. SEROQUEL XR [Suspect]
     Indication: MENTAL DISORDER
     Route: 048
  5. SEROQUEL XR [Suspect]
     Indication: BIPOLAR I DISORDER
     Route: 048
  6. SEROQUEL XR [Suspect]
     Indication: DEPRESSION
     Route: 048
  7. SYNTHROID [Concomitant]
     Indication: THYROID DISORDER
  8. KLONOPIN [Concomitant]

REACTIONS (2)
  - PROCEDURAL PAIN [None]
  - OFF LABEL USE [None]
